FAERS Safety Report 4934700-1 (Version None)
Quarter: 2006Q1

REPORT INFORMATION
  Report Type: 
  Country: None (occurrence: None)
  Receive Date: 20060303
  Receipt Date: 20060220
  Transmission Date: 20060701
  Serious: Yes (Hospitalization, Other)
  Sender: FDA-Public Use
  Company Number: 2005095554

PATIENT
  Age: 74 Year
  Sex: Male

DRUGS (2)
  1. CABERGOLINE [Suspect]
     Indication: PARKINSONISM
     Dosage: 4 MG (2 MG, 2 IN 1 D)
  2. L-DOPA (LEVODOPA) [Concomitant]

REACTIONS (11)
  - ACUTE PULMONARY OEDEMA [None]
  - CARDIAC FAILURE [None]
  - CARDIAC MURMUR [None]
  - CARDIAC VALVE DISEASE [None]
  - CARDIOMEGALY [None]
  - DILATATION ATRIAL [None]
  - GALLOP RHYTHM PRESENT [None]
  - MITRAL VALVE INCOMPETENCE [None]
  - OEDEMA PERIPHERAL [None]
  - RALES [None]
  - VENOUS PRESSURE JUGULAR INCREASED [None]
